FAERS Safety Report 5626129-8 (Version None)
Quarter: 2008Q1

REPORT INFORMATION
  Report Type: 
  Country: None (occurrence: None)
  Receive Date: 20080213
  Receipt Date: 20080213
  Transmission Date: 20080703
  Serious: Yes (Hospitalization, Other)
  Sender: FDA-Public Use
  Company Number: None

PATIENT
  Sex: Female
  Weight: 102.0593 kg

DRUGS (2)
  1. CYMBALTA [Suspect]
     Indication: ANXIETY
     Dosage: 60MG 1/DAY PO
     Route: 048
     Dates: start: 20060401, end: 20080209
  2. CYMBALTA [Suspect]
     Indication: STRESS
     Dosage: 60MG 1/DAY PO
     Route: 048
     Dates: start: 20060401, end: 20080209

REACTIONS (33)
  - AFFECT LABILITY [None]
  - ALOPECIA [None]
  - AMNESIA [None]
  - ARTHRALGIA [None]
  - BRUXISM [None]
  - CONFUSIONAL STATE [None]
  - DIZZINESS [None]
  - DRUG WITHDRAWAL SYNDROME [None]
  - ECONOMIC PROBLEM [None]
  - FAMILY STRESS [None]
  - FATIGUE [None]
  - GASTRIC DISORDER [None]
  - HEADACHE [None]
  - HYPERSOMNIA [None]
  - INCONTINENCE [None]
  - IRRITABILITY [None]
  - JAW DISORDER [None]
  - LOSS OF EMPLOYMENT [None]
  - MOOD SWINGS [None]
  - MUSCLE TWITCHING [None]
  - MYALGIA [None]
  - NAUSEA [None]
  - PAIN [None]
  - PARAESTHESIA [None]
  - PARTNER STRESS [None]
  - PRURITUS [None]
  - SUICIDAL IDEATION [None]
  - TEMPERATURE INTOLERANCE [None]
  - TINNITUS [None]
  - TREMOR [None]
  - VISUAL DISTURBANCE [None]
  - VOMITING [None]
  - WEIGHT INCREASED [None]
